FAERS Safety Report 8007122-7 (Version None)
Quarter: 2011Q4

REPORT INFORMATION
  Report Type: 
  Country: None (occurrence: None)
  Receive Date: 20111227
  Receipt Date: 20111221
  Transmission Date: 20120403
  Serious: Yes (Other)
  Sender: FDA-Public Use
  Company Number: US-PFIZER INC-2011310861

PATIENT
  Sex: Female
  Weight: 59 kg

DRUGS (3)
  1. NEURONTIN [Suspect]
     Indication: MOOD ALTERED
  2. NEURONTIN [Suspect]
     Indication: MIGRAINE
  3. NEURONTIN [Suspect]
     Indication: ANXIETY
     Dosage: UNK
     Route: 048

REACTIONS (2)
  - DRUG DEPENDENCE [None]
  - DRUG ABUSE [None]
